FAERS Safety Report 12486603 (Version 4)
Quarter: 2016Q4

REPORT INFORMATION
  Report Type: Spontaneous
  Country: US (occurrence: US)
  Receive Date: 20160621
  Receipt Date: 20161005
  Transmission Date: 20170207
  Serious: No
  Sender: FDA-Public Use
  Company Number: US-ASTRAZENECA-2016SE66989

PATIENT
  Sex: Female
  Weight: 74 kg

DRUGS (3)
  1. NEXIUM 24HR [Suspect]
     Active Substance: ESOMEPRAZOLE MAGNESIUM
     Indication: GASTROOESOPHAGEAL REFLUX DISEASE
     Route: 048
     Dates: start: 201603, end: 2016
  2. NEXIUM 24HR [Suspect]
     Active Substance: ESOMEPRAZOLE MAGNESIUM
     Indication: GASTROOESOPHAGEAL REFLUX DISEASE
     Route: 048
     Dates: start: 2016, end: 2016
  3. NEXIUM 24HR [Suspect]
     Active Substance: ESOMEPRAZOLE MAGNESIUM
     Indication: GASTROOESOPHAGEAL REFLUX DISEASE
     Route: 048
     Dates: start: 2015, end: 201603

REACTIONS (10)
  - Condition aggravated [Recovering/Resolving]
  - Hypophagia [Recovering/Resolving]
  - Off label use [Unknown]
  - Emotional distress [Recovering/Resolving]
  - Musculoskeletal discomfort [Recovering/Resolving]
  - Gastrooesophageal reflux disease [Unknown]
  - Abdominal distension [Unknown]
  - Intentional product misuse [Unknown]
  - Oropharyngeal discomfort [Recovering/Resolving]
  - Drug ineffective [Unknown]

NARRATIVE: CASE EVENT DATE: 2015
